FAERS Safety Report 10545972 (Version 2)
Quarter: 2014Q4

REPORT INFORMATION
  Report Type: Report from Study
  Country: CH (occurrence: CH)
  Receive Date: 20141027
  Receipt Date: 20141107
  Transmission Date: 20150529
  Serious: Yes (Hospitalization)
  Sender: FDA-Public Use
  Company Number: CH-ABBVIE-14K-151-1298211-00

PATIENT
  Sex: Male
  Weight: 73 kg

DRUGS (3)
  1. HUMIRA [Suspect]
     Active Substance: ADALIMUMAB
     Indication: ANKYLOSING SPONDYLITIS
     Route: 065
     Dates: start: 20110209, end: 20120517
  2. HUMIRA [Suspect]
     Active Substance: ADALIMUMAB
     Route: 065
     Dates: start: 20130419
  3. NSAID^S [Concomitant]
     Active Substance: UNSPECIFIED INGREDIENT
     Indication: ANKYLOSING SPONDYLITIS

REACTIONS (5)
  - C-reactive protein increased [Recovered/Resolved]
  - Infection [Recovering/Resolving]
  - Headache [Recovered/Resolved]
  - Hypersensitivity [Recovering/Resolving]
  - Pyrexia [Recovered/Resolved]

NARRATIVE: CASE EVENT DATE: 20120517
